FAERS Safety Report 9842662 (Version 2)
Quarter: 2014Q1

REPORT INFORMATION
  Report Type: Spontaneous
  Country: US (occurrence: US)
  Receive Date: 20140124
  Receipt Date: 20140124
  Transmission Date: 20141002
  Serious: Yes (Other)
  Sender: FDA-Public Use
  Company Number: US-CELGENEUS-163-21880-12112271

PATIENT
  Sex: Male
  Weight: 77.18 kg

DRUGS (2)
  1. REVLIMID [Suspect]
     Indication: PLASMA CELL MYELOMA
     Dosage: 10 MILLIGRAM
     Route: 048
     Dates: start: 20121024, end: 2012
  2. REVLIMID [Suspect]
     Route: 048
     Dates: start: 201212

REACTIONS (8)
  - Musculoskeletal disorder [Unknown]
  - Pancreatitis [Unknown]
  - Constipation [Unknown]
  - Nasopharyngitis [Unknown]
  - Nausea [Recovered/Resolved]
  - Musculoskeletal stiffness [Recovering/Resolving]
  - White blood cell count decreased [Unknown]
  - Rash [Unknown]
